FAERS Safety Report 8816434 (Version 1)
Quarter: 2012Q4

REPORT INFORMATION
  Report Type: 
  Country: NL (occurrence: None)
  Receive Date: 20120927
  Receipt Date: 20120927
  Transmission Date: 20130627
  Serious: Yes (Life-Threatening, Hospitalization)
  Sender: FDA-Public Use
  Company Number: FURO20120009

PATIENT
  Age: 62 Year
  Sex: Male

DRUGS (6)
  1. FUROSEMIDE [Suspect]
     Indication: OEDEMA PERIPHERAL
  2. PERINDOPRIL [Suspect]
  3. SALMETEROL (SALMETEROL) (INHALANT) (SALMETEROL) [Concomitant]
  4. FLUTICASONE (FLUTICASONE) (INHALANT) (FLUTICASONE) [Concomitant]
  5. TIOTROPIUM (TIOTROPIUM) (INHALANT) (TIOTROPIUM) [Concomitant]
  6. SPIRONOLACTONE (SPIRONOLACTONE) (SPIRONOLACTONE) [Concomitant]

REACTIONS (10)
  - Dyspnoea [None]
  - Oedema peripheral [None]
  - Respiratory acidosis [None]
  - Hypertension [None]
  - Ventricular tachycardia [None]
  - Blood sodium decreased [None]
  - Emphysema [None]
  - Hypokalaemia [None]
  - Respiratory depression [None]
  - Metabolic alkalosis [None]
